FAERS Safety Report 7762364-0 (Version None)
Quarter: 2011Q3

REPORT INFORMATION
  Report Type: 
  Country: None (occurrence: None)
  Receive Date: 20110920
  Receipt Date: 20110912
  Transmission Date: 20111222
  Serious: Yes (Other)
  Sender: FDA-Public Use
  Company Number: GB-ROCHE-796094

PATIENT
  Sex: Female
  Weight: 57 kg

DRUGS (5)
  1. TOCILIZUMAB [Suspect]
     Indication: RHEUMATOID ARTHRITIS
     Route: 042
     Dates: start: 20110602, end: 20110602
  2. TOCILIZUMAB [Suspect]
     Route: 042
     Dates: start: 20110630, end: 20110630
  3. PREDNISOLONE [Concomitant]
     Route: 048
     Dates: start: 20110804, end: 20110818
  4. AMITRIPTYLINE HCL [Concomitant]
     Route: 048
  5. MELOXICAM [Concomitant]
     Route: 048

REACTIONS (3)
  - LOWER RESPIRATORY TRACT INFECTION [None]
  - DYSPHONIA [None]
  - VOCAL CORD POLYP [None]
